FAERS Safety Report 10197690 (Version 1)
Quarter: 2014Q2

REPORT INFORMATION
  Report Type: Spontaneous
  Country: US (occurrence: None)
  Receive Date: 20140523
  Receipt Date: 20140523
  Transmission Date: 20141212
  Serious: No
  Sender: FDA-Public Use
  Company Number: None

PATIENT
  Age: 65 Year
  Sex: 0
  Weight: 84.82 kg

DRUGS (2)
  1. TRILYTE PEG 3350 +FLAVOR PACKETS [Suspect]
     Indication: COLONOSCOPY
     Dosage: 8 OZ X 9 15 MIN INTERVALS ORAL
     Route: 048
     Dates: start: 20140504, end: 20140504
  2. VAGIFEM [Concomitant]

REACTIONS (6)
  - Vomiting [None]
  - Headache [None]
  - Neck pain [None]
  - Musculoskeletal pain [None]
  - Chest pain [None]
  - Pain in extremity [None]
